FAERS Safety Report 6459797 (Version 14)
Quarter: 2014Q1

REPORT INFORMATION
  Report Type: Spontaneous
  Country: US (occurrence: US)
  Receive Date: 20071106
  Receipt Date: 20140131
  Transmission Date: 20141002
  Serious: Yes (Death, Life-Threatening, Hospitalization, Other)
  Sender: FDA-Public Use
  Company Number: US-JNJFOC-20071007549

PATIENT
  Age: 69 Year
  Sex: Male
  Weight: 70 kg

DRUGS (17)
  1. REMICADE [Suspect]
     Indication: RHEUMATOID ARTHRITIS
     Route: 042
     Dates: end: 200708
  2. REMICADE [Suspect]
     Indication: VASCULITIS
     Route: 042
     Dates: end: 200708
  3. CYTOXAN [Suspect]
     Indication: RHEUMATOID VASCULITIS
     Route: 048
  4. CYTOXAN [Suspect]
     Indication: RHEUMATOID VASCULITIS
     Route: 048
     Dates: end: 200708
  5. PLAQUENIL [Suspect]
     Indication: PRODUCT USED FOR UNKNOWN INDICATION
  6. PLAQUENIL [Suspect]
     Indication: PRODUCT USED FOR UNKNOWN INDICATION
  7. PREDNISONE [Suspect]
     Indication: VASCULITIS
  8. PREDNISONE [Suspect]
     Indication: VASCULITIS
  9. COLCHICINE [Suspect]
     Indication: PRODUCT USED FOR UNKNOWN INDICATION
  10. FLECAINIDE [Concomitant]
  11. HYTRIN [Concomitant]
  12. ATENOLOL [Concomitant]
  13. POTASSIUM [Concomitant]
  14. LASIX [Concomitant]
  15. ASPIRIN [Concomitant]
     Indication: PROPHYLAXIS
  16. THEO-DUR [Concomitant]
     Indication: CHRONIC OBSTRUCTIVE PULMONARY DISEASE
  17. RESTORIL [Concomitant]
     Indication: SLEEP DISORDER

REACTIONS (12)
  - Progressive multifocal leukoencephalopathy [Fatal]
  - Dysarthria [Not Recovered/Not Resolved]
  - Nervous system disorder [Not Recovered/Not Resolved]
  - Aphasia [Not Recovered/Not Resolved]
  - Multi-organ failure [Fatal]
  - Hemiparesis [Unknown]
  - Respiratory failure [Unknown]
  - Asthenia [Not Recovered/Not Resolved]
  - Cerebrovascular accident [Not Recovered/Not Resolved]
  - Confusional state [Not Recovered/Not Resolved]
  - Decreased appetite [Not Recovered/Not Resolved]
  - Urinary incontinence [Not Recovered/Not Resolved]
